FAERS Safety Report 5018724-4 (Version None)
Quarter: 2006Q2

REPORT INFORMATION
  Report Type: 
  Country: None (occurrence: None)
  Receive Date: 20060606
  Receipt Date: 20060522
  Transmission Date: 20061013
  Serious: Yes (Hospitalization)
  Sender: FDA-Public Use
  Company Number: US-ROCHE-448933

PATIENT
  Age: 50 Year
  Sex: Male
  Weight: 98.2 kg

DRUGS (19)
  1. RIBAVIRIN [Suspect]
     Route: 048
     Dates: start: 20060309, end: 20060504
  2. PEG-INTERFERON ALFA 2A (RO 25-8310) [Suspect]
     Route: 058
     Dates: start: 20060309, end: 20060427
  3. INVIRASE [Suspect]
     Route: 048
  4. BACTRIM [Suspect]
     Route: 048
  5. MS CONTIN [Concomitant]
  6. GLUCOPHAGE [Concomitant]
  7. TRUVADA [Concomitant]
     Route: 048
  8. RITONAVIR [Concomitant]
  9. SYNTHROID [Concomitant]
     Route: 048
  10. REMERON [Concomitant]
     Route: 048
  11. SEROQUEL [Concomitant]
     Dosage: 100 MG TAKEN EVERY MORNING AND 400 MG TAKEN EVERY EVENING
     Route: 048
  12. ASPIRIN [Concomitant]
     Route: 048
  13. KLONOPIN [Concomitant]
     Route: 048
  14. PROTONIX [Concomitant]
     Dosage: TAKEN IN THE EVENING
     Route: 048
  15. IBUPROFEN [Concomitant]
     Dosage: TAKEN AS NEEDED
     Route: 048
  16. ZOFREN [Concomitant]
     Dosage: TAKEN DAILY AS NEEDED
     Route: 048
  17. PROCRIT [Concomitant]
     Route: 058
  18. GOLYTELY [Concomitant]
     Route: 048
  19. PHERGAN [Concomitant]
     Dosage: TAKEN AS MUCH AS NEEDED
     Route: 048

REACTIONS (1)
  - DEEP VEIN THROMBOSIS [None]
